FAERS Safety Report 5572902-4 (Version None)
Quarter: 2007Q4

REPORT INFORMATION
  Report Type: 
  Country: None (occurrence: None)
  Receive Date: 20071224
  Receipt Date: 20071220
  Transmission Date: 20080405
  Serious: Yes (Death)
  Sender: FDA-Public Use
  Company Number: PHHO2007DE18210

PATIENT
  Age: 50 Year
  Sex: Female
  Weight: 74 kg

DRUGS (3)
  1. NILOTINIB VS IMATINIB [Suspect]
     Indication: GASTROINTESTINAL STROMAL TUMOUR
     Dosage: 400 MG, BID
     Route: 048
     Dates: start: 20070920
  2. HYDROCHLOROTHIAZIDE [Concomitant]
  3. ONDANSETRON [Concomitant]

REACTIONS (2)
  - DRUG INEFFECTIVE [None]
  - MALIGNANT NEOPLASM PROGRESSION [None]
